FAERS Safety Report 4795391-6 (Version None)
Quarter: 2005Q4

REPORT INFORMATION
  Report Type: 
  Country: None (occurrence: None)
  Receive Date: 20051006
  Receipt Date: 20050929
  Transmission Date: 20060501
  Serious: Yes (Hospitalization)
  Sender: FDA-Public Use
  Company Number: ZONI002215

PATIENT
  Age: 17 Year
  Sex: Female

DRUGS (2)
  1. ZONISAMIDE [Suspect]
     Dosage: 100 MG, 1 IN 1 D, ORAL
     Route: 048
     Dates: start: 20050823, end: 20050913
  2. TEGRETOL [Suspect]
     Dates: start: 20050828, end: 20050906

REACTIONS (6)
  - CONDITION AGGRAVATED [None]
  - EPILEPSY [None]
  - GRANULOCYTOPENIA [None]
  - PNEUMONIA STAPHYLOCOCCAL [None]
  - UPPER RESPIRATORY TRACT INFLAMMATION [None]
  - WHITE BLOOD CELL COUNT DECREASED [None]
